FAERS Safety Report 7427228-0 (Version None)
Quarter: 2011Q2

REPORT INFORMATION
  Report Type: 
  Country: None (occurrence: None)
  Receive Date: 20110420
  Receipt Date: 20110413
  Transmission Date: 20111010
  Serious: Yes (Other)
  Sender: FDA-Public Use
  Company Number: GB-ALLERGAN-1102730US

PATIENT
  Age: 64 Year
  Sex: Female

DRUGS (5)
  1. AMITRIPTYLINE HCL [Concomitant]
     Indication: NEURALGIA
     Dosage: 10 MG, UNK
     Dates: start: 20100101
  2. TROSPIUM CHLORIDE [Suspect]
     Indication: HYPERTONIC BLADDER
     Dosage: 60 MG, UNK
     Route: 048
     Dates: start: 20110107
  3. WARFARIN [Concomitant]
     Indication: THROMBOSIS
     Dosage: 1 MG, UNK
     Route: 048
     Dates: start: 20100101
  4. NOVOMIX [Concomitant]
     Indication: DIABETES MELLITUS
     Dosage: UNK
     Dates: start: 20100101
  5. GABAPENTIN [Concomitant]
     Indication: BACK PAIN
     Dosage: UNK
     Route: 048
     Dates: start: 20100101

REACTIONS (2)
  - HYPOGLYCAEMIA [None]
  - ASTHMA [None]
